FAERS Safety Report 24362374 (Version 1)
Quarter: 2024Q3

REPORT INFORMATION
  Report Type: Spontaneous
  Country: US (occurrence: None)
  Receive Date: 20240925
  Receipt Date: 20240925
  Transmission Date: 20241017
  Serious: Yes (Hospitalization)
  Sender: Public
  Company Number: None

PATIENT
  Sex: Female
  Weight: 76 kg

DRUGS (1)
  1. WINREVAIR [Suspect]
     Active Substance: SOTATERCEPT-CSRK
     Indication: Pulmonary arterial hypertension
     Dosage: OTHER QUANTITY : 0.5 ML;?FREQUENCY : EVERY THREE WEEKS;?
     Route: 058
     Dates: start: 202408

REACTIONS (3)
  - Rectal haemorrhage [None]
  - Post procedural haemorrhage [None]
  - Colonoscopy [None]
